FAERS Safety Report 8494507-8 (Version None)
Quarter: 2012Q3

REPORT INFORMATION
  Report Type: 
  Country: None (occurrence: None)
  Receive Date: 20120709
  Receipt Date: 20120612
  Transmission Date: 20120928
  Serious: No
  Sender: FDA-Public Use
  Company Number: US-COVIDIEN/TYCO HEALTHCARE/MALLINCKRODT-T201202565

PATIENT
  Sex: Female

DRUGS (6)
  1. DIOVAN [Concomitant]
     Indication: BLOOD PRESSURE
     Dosage: UNK
  2. LEVOTHYROXINE SODIUM [Concomitant]
     Indication: THYROID DISORDER
     Dosage: UNK
  3. OXYCODONE/ACETAMINOPHEN [Suspect]
     Indication: PAIN
     Dosage: 10/325 Q6 HRS PRN
     Route: 048
     Dates: start: 20120609
  4. TOPROL-XL [Concomitant]
     Indication: BLOOD PRESSURE
     Dosage: UNK
  5. FELODIPINE [Concomitant]
     Indication: BLOOD PRESSURE
     Dosage: UNK
  6. XANAX [Concomitant]
     Indication: ANXIETY
     Dosage: PRN

REACTIONS (3)
  - DRUG EFFECT INCREASED [None]
  - SOMNOLENCE [None]
  - NAUSEA [None]
